FAERS Safety Report 5103852-5 (Version None)
Quarter: 2006Q3

REPORT INFORMATION
  Report Type: 
  Country: None (occurrence: None)
  Receive Date: 20060913
  Receipt Date: 20060911
  Transmission Date: 20061208
  Serious: Yes (Hospitalization, Disabling)
  Sender: FDA-Public Use
  Company Number: US-GLAXOSMITHKLINE-A0619743A

PATIENT
  Sex: Female

DRUGS (9)
  1. ZIAGEN [Suspect]
     Indication: HIV INFECTION
     Dosage: 600MG PER DAY
     Route: 048
  2. BACTRIM [Concomitant]
  3. NORVIR [Concomitant]
  4. OXYCONTIN [Concomitant]
  5. DILANTIN [Concomitant]
  6. GANCICLOVIR [Concomitant]
  7. FLUCONAZOLE [Concomitant]
  8. LEXIVA [Concomitant]
  9. AMBIEN [Concomitant]

REACTIONS (4)
  - DRUG HYPERSENSITIVITY [None]
  - PAIN [None]
  - RASH GENERALISED [None]
  - SWELLING [None]
